FAERS Safety Report 6422843-5 (Version None)
Quarter: 2009Q4

REPORT INFORMATION
  Report Type: 
  Country: None (occurrence: None)
  Receive Date: 20091102
  Receipt Date: 20091020
  Transmission Date: 20100525
  Serious: Yes (Hospitalization)
  Sender: FDA-Public Use
  Company Number: US-ROCHE-487945

PATIENT
  Sex: Female
  Weight: 93 kg

DRUGS (9)
  1. CAPECITABINE [Suspect]
     Indication: BREAST CANCER
     Dosage: ADMINISTERED AS TWO DAILY DOSES OF 825 MG/M2, GIVEN FOR 2 WEEKS OF THREE WEEK CYCLE AS PER PROTOCOL.
     Route: 048
     Dates: start: 20070214
  2. DOCETAXEL [Suspect]
     Indication: BREAST CANCER
     Dosage: 75 MG/M2 ON DAY OF THREE WEEK CYCLE AS PER PROTOCOL.
     Route: 042
     Dates: start: 20070214
  3. CENTRUM [Concomitant]
  4. FELODIPINE [Concomitant]
  5. VITAMIN B COMPLEX CAP [Concomitant]
  6. AVELOX [Concomitant]
     Route: 048
  7. DEXAMETHASONE [Concomitant]
     Dosage: TOTAL DAILY DOSE REPORTED AS 8 X 3 DAYS.
     Dates: start: 20070214
  8. K-DUR [Concomitant]
     Dates: start: 20070214
  9. ATENOLOL AND CHLORTHALIDONE [Concomitant]
     Dosage: TOTAL DAILY DOSE REPORTED AS 50/25 MG.

REACTIONS (2)
  - FEBRILE NEUTROPENIA [None]
  - LUNG INFILTRATION [None]
